FAERS Safety Report 7916566-0 (Version None)
Quarter: 2011Q4

REPORT INFORMATION
  Report Type: 
  Country: None (occurrence: None)
  Receive Date: 20111116
  Receipt Date: 20111108
  Transmission Date: 20120403
  Serious: Yes (Hospitalization, Other)
  Sender: FDA-Public Use
  Company Number: US-JNJFOC-20111008395

PATIENT
  Age: 53 Year
  Sex: Female

DRUGS (13)
  1. MS CONTIN [Suspect]
     Indication: PAIN
     Route: 065
  2. METHADONE HCL [Suspect]
     Route: 048
  3. MS CONTIN [Suspect]
     Route: 065
  4. METHADONE HCL [Suspect]
     Indication: PAIN
     Route: 048
  5. HYDROMORPHONE HCL [Suspect]
     Indication: PAIN
     Route: 042
  6. FENTANYL [Suspect]
     Indication: PAIN
     Route: 062
  7. HYDROMORPHONE HCL [Suspect]
     Route: 042
  8. MORPHINE [Suspect]
     Route: 048
  9. FENTANYL [Suspect]
     Route: 062
  10. FENTANYL [Suspect]
     Route: 062
  11. HYDROMORPHONE HCL [Suspect]
     Route: 042
  12. FENTANYL [Suspect]
     Route: 062
  13. MORPHINE [Suspect]
     Indication: PAIN
     Route: 048

REACTIONS (5)
  - SEDATION [None]
  - NEUROTOXICITY [None]
  - CONFUSIONAL STATE [None]
  - MYOCLONUS [None]
  - DRUG EFFECT DECREASED [None]
